FAERS Safety Report 5001769-8 (Version None)
Quarter: 2006Q2

REPORT INFORMATION
  Report Type: 
  Country: None (occurrence: None)
  Receive Date: 20060512
  Receipt Date: 20060512
  Transmission Date: 20061013
  Serious: Yes (Hospitalization)
  Sender: FDA-Public Use
  Company Number: None

PATIENT
  Age: 80 Year
  Sex: Male
  Weight: 100.9 kg

DRUGS (2)
  1. METOPROLOL TARTRATE [Suspect]
     Dosage: 25 MG Q12H PO
     Route: 048
  2. ISOSORBIDE [Suspect]
     Dosage: 60MG QD PO
     Route: 048

REACTIONS (4)
  - DIZZINESS [None]
  - GASTROENTERITIS VIRAL [None]
  - HAEMATOMA [None]
  - SYNCOPE [None]
